FAERS Safety Report 6740964-4 (Version None)
Quarter: 2010Q2

REPORT INFORMATION
  Report Type: 
  Country: None (occurrence: None)
  Receive Date: 20100526
  Receipt Date: 20100518
  Transmission Date: 20101027
  Serious: No
  Sender: FDA-Public Use
  Company Number: US-BIOGENIDEC-2010BI016931

PATIENT
  Sex: Female

DRUGS (2)
  1. TYSABRI [Suspect]
     Indication: MULTIPLE SCLEROSIS
     Route: 042
     Dates: start: 20061102
  2. VALIUM LIKE MEDICATION [Concomitant]
     Indication: PREMEDICATION

REACTIONS (2)
  - CLAUSTROPHOBIA [None]
  - RESPIRATORY ARREST [None]
